FAERS Safety Report 10693786 (Version 5)
Quarter: 2015Q3

REPORT INFORMATION
  Report Type: Spontaneous
  Country: US (occurrence: US)
  Receive Date: 20150106
  Receipt Date: 20150824
  Transmission Date: 20151125
  Serious: Yes (Hospitalization, Other)
  Sender: FDA-Public Use
  Company Number: US-BAYER-2015-001349

PATIENT
  Age: 39 Year
  Sex: Female
  Weight: 106.58 kg

DRUGS (1)
  1. MIRENA [Suspect]
     Active Substance: LEVONORGESTREL
     Indication: CONTRACEPTION
     Dosage: 20 MCG/24HR, CONT
     Route: 015
     Dates: start: 20080421, end: 20110504

REACTIONS (8)
  - Anxiety [None]
  - Drug ineffective [None]
  - Pain [None]
  - Pregnancy with contraceptive device [None]
  - Emotional distress [None]
  - Depression [None]
  - Injury [None]
  - Embedded device [None]

NARRATIVE: CASE EVENT DATE: 2010
